FAERS Safety Report 8472484-3 (Version None)
Quarter: 2012Q2

REPORT INFORMATION
  Report Type: 
  Country: None (occurrence: None)
  Receive Date: 20120627
  Receipt Date: 20120107
  Transmission Date: 20120825
  Serious: No
  Sender: FDA-Public Use
  Company Number: US-AMGEN-USASP2012001239

PATIENT
  Age: 92 Year
  Sex: Female
  Weight: 47.619 kg

DRUGS (2)
  1. PROCRIT [Suspect]
     Dosage: 20000 IU, UNK
     Route: 058
     Dates: start: 20090101, end: 20111201
  2. PROCRIT [Suspect]
     Indication: BLOOD COUNT ABNORMAL
     Dosage: 30000 IU, UNK
     Route: 058
     Dates: start: 20120104

REACTIONS (2)
  - HAEMOGLOBIN DECREASED [None]
  - PAIN IN EXTREMITY [None]
